FAERS Safety Report 9853681 (Version 2)
Quarter: 2014Q1

REPORT INFORMATION
  Report Type: Spontaneous
  Country: US (occurrence: US)
  Receive Date: 20140129
  Receipt Date: 20140129
  Transmission Date: 20141002
  Serious: No
  Sender: FDA-Public Use
  Company Number: US-GLAXOSMITHKLINE-A0783009A

PATIENT
  Age: 59 Year
  Sex: Female

DRUGS (2)
  1. WELLBUTRIN [Suspect]
     Indication: ANXIETY DISORDER
     Dosage: 100MG THREE TIMES PER DAY
     Route: 048
     Dates: start: 1998, end: 2009
  2. NATUROPATHIC MEDICATION [Concomitant]
     Indication: PRODUCT USED FOR UNKNOWN INDICATION

REACTIONS (7)
  - Tinnitus [Not Recovered/Not Resolved]
  - Insomnia [Unknown]
  - Tremor [Unknown]
  - Psychomotor hyperactivity [Unknown]
  - Heart rate increased [Unknown]
  - Therapeutic response decreased [Unknown]
  - Drug ineffective [Unknown]
